FAERS Safety Report 19461387 (Version 4)
Quarter: 2021Q4

REPORT INFORMATION
  Report Type: Report from Study
  Country: GB (occurrence: GB)
  Receive Date: 20210625
  Receipt Date: 20211006
  Transmission Date: 20220303
  Serious: Yes (Hospitalization)
  Sender: FDA-Public Use
  Company Number: GB-WORLDWIDE CLINICAL TRIALS-2021GB000510

PATIENT
  Age: 36 Year
  Sex: Male
  Weight: 62.6 kg

DRUGS (4)
  1. RIPRETINIB [Suspect]
     Active Substance: RIPRETINIB
     Indication: Gastrointestinal stromal tumour
     Dosage: 100 MILLIGRAM, QD
     Route: 048
     Dates: start: 20210604, end: 20210615
  2. RIPRETINIB [Suspect]
     Active Substance: RIPRETINIB
     Dosage: 100 MILLIGRAM, QD
     Route: 048
     Dates: start: 20210616
  3. IBUPROFEN [Concomitant]
     Active Substance: IBUPROFEN
     Indication: Abdominal pain upper
     Dosage: 400 MILLIGRAM, PRN
     Route: 048
     Dates: start: 20201214
  4. PREDNISOLONE SODIUM PHOSPHATE [Concomitant]
     Active Substance: PREDNISOLONE SODIUM PHOSPHATE
     Indication: Haemorrhoids
     Dosage: 5 MILLIGRAM, PRN
     Route: 054
     Dates: start: 20210218

REACTIONS (1)
  - Anorectal infection [Recovering/Resolving]

NARRATIVE: CASE EVENT DATE: 20210615
